FAERS Safety Report 24008210 (Version 1)
Quarter: 2024Q2

REPORT INFORMATION
  Report Type: Other
  Country: FR (occurrence: FR)
  Receive Date: 20240625
  Receipt Date: 20240625
  Transmission Date: 20240716
  Serious: Yes (Hospitalization, Other)
  Sender: FDA-Public Use
  Company Number: FR-EMA-DD-20190802-sahu_k-171935

PATIENT

DRUGS (10)
  1. AMLODIPINE [Suspect]
     Active Substance: AMLODIPINE BESYLATE
     Indication: Product used for unknown indication
     Dosage: 5 MILLIGRAM,(INTERVAL :1 DAYS)
     Route: 065
     Dates: start: 2017
  2. ZOPICLONE [Suspect]
     Active Substance: ZOPICLONE
     Indication: Product used for unknown indication
     Dosage: 1 DOSAGE FORM,(INTERVAL :1 DAYS)
     Route: 065
     Dates: start: 2017
  3. ASPIRIN [Suspect]
     Active Substance: ASPIRIN
     Indication: Product used for unknown indication
     Dosage: 75 MILLIGRAM,75 MG, QD,(INTERVAL :1 DAYS)
     Route: 065
     Dates: start: 2017
  4. FINGOLIMOD [Suspect]
     Active Substance: FINGOLIMOD
     Indication: Relapsing-remitting multiple sclerosis
     Dosage: UNK ()
     Route: 065
     Dates: start: 20160901, end: 20170306
  5. FINGOLIMOD [Suspect]
     Active Substance: FINGOLIMOD
     Indication: Product used for unknown indication
  6. BACLOFEN [Suspect]
     Active Substance: BACLOFEN
     Indication: Product used for unknown indication
     Dosage: 6 DF (DOSE OF 10 MG), QD
     Route: 065
     Dates: start: 201703
  7. LEVOTHYROXINE [Suspect]
     Active Substance: LEVOTHYROXINE\LEVOTHYROXINE SODIUM
     Indication: Product used for unknown indication
     Dosage: 125 MICROGRAM,125 UG, QD,(INTERVAL :1 DAYS)
     Route: 065
     Dates: start: 20161214
  8. NADROPARIN CALCIUM [Suspect]
     Active Substance: NADROPARIN CALCIUM
     Indication: Product used for unknown indication
     Dosage: 2850 INTERNATIONAL UNIT,2850 IU, QD,(INTERVAL :1 DAYS)
     Route: 065
     Dates: start: 20170221
  9. DALFAMPRIDINE [Suspect]
     Active Substance: DALFAMPRIDINE
     Indication: Multiple sclerosis
     Dosage: UNK UNK, QD ()
     Route: 048
     Dates: start: 201609, end: 20170301
  10. DALFAMPRIDINE [Suspect]
     Active Substance: DALFAMPRIDINE
     Indication: Product used for unknown indication
     Dosage: 1 DOSAGE FORM,UNK UNK, QD (),(INTERVAL :1 DAYS)
     Route: 048
     Dates: start: 20170310

REACTIONS (13)
  - Muscular weakness [Unknown]
  - Cerebrovascular accident [Recovered/Resolved with Sequelae]
  - Dysphagia [Recovering/Resolving]
  - Hemiplegia [Recovering/Resolving]
  - Femur fracture [Not Recovered/Not Resolved]
  - Cerebral thrombosis [Recovered/Resolved with Sequelae]
  - Hypoaesthesia [Not Recovered/Not Resolved]
  - Motor dysfunction [Unknown]
  - Anosognosia [Unknown]
  - Femoral neck fracture [Not Recovered/Not Resolved]
  - Fall [Recovered/Resolved]
  - Paralysis [Not Recovered/Not Resolved]
  - Dysarthria [Not Recovered/Not Resolved]

NARRATIVE: CASE EVENT DATE: 20161206
